FAERS Safety Report 16028378 (Version 1)
Quarter: 2019Q1

REPORT INFORMATION
  Report Type: Spontaneous
  Country: US (occurrence: US)
  Receive Date: 20190304
  Receipt Date: 20190304
  Transmission Date: 20190418
  Serious: No
  Sender: FDA-Public Use
  Company Number: US-B.I. PHARMACEUTICALS,INC./RIDGEFIELD-2019-BI-009192

PATIENT
  Age: 71 Year
  Sex: Female

DRUGS (7)
  1. ELAVIL [Concomitant]
     Active Substance: AMITRIPTYLINE HYDROCHLORIDE
     Indication: CYSTITIS INTERSTITIAL
     Dosage: ONE CAPLET HS;  FORM STRENGTH: 25MG; FORMULATION: CAPLET
     Route: 048
     Dates: start: 201807
  2. SPIRIVA RESPIMAT [Suspect]
     Active Substance: TIOTROPIUM BROMIDE
     Dosage: 2 INHALATIONS ONCE DAILY;  FORM STRENGTH: 1.25 MCG;  INHALATION SPRAY? YES ?DOSE NOT CHANGED
     Route: 055
     Dates: start: 201801
  3. HYDROXYZINE HCL [Concomitant]
     Active Substance: HYDROXYZINE HYDROCHLORIDE
     Indication: CYSTITIS INTERSTITIAL
     Dosage: ONE CAPLET HS;  FORM STRENGTH: 25MG; FORMULATION: CAPLET
     Route: 048
     Dates: start: 201807
  4. NORVASC [Concomitant]
     Active Substance: AMLODIPINE BESYLATE
     Indication: HYPERTENSION
     Dosage: ONE CAPLET DAILY;  FORM STRENGTH: 5MG; FORMULATION: CAPLET
     Route: 048
  5. BABY ASPIRIN [Concomitant]
     Active Substance: ASPIRIN
     Indication: PROPHYLAXIS
     Dosage: ONE CAPLET DAILY;  FORM STRENGTH: 81MG; FORMULATION: CAPLET
     Route: 048
  6. SPIRIVA RESPIMAT [Suspect]
     Active Substance: TIOTROPIUM BROMIDE
     Indication: EMPHYSEMA
     Dosage: 2 INHALATIONS ONCE DAILY;  FORM STRENGTH: 2.5 MCG; FORMULATION: INHALATION SPRAY? YES ?DRUG REDUCED
     Route: 055
     Dates: start: 201401, end: 201801
  7. VYTORIN [Concomitant]
     Active Substance: EZETIMIBE\SIMVASTATIN
     Indication: BLOOD CHOLESTEROL INCREASED
     Dosage: ONE CAPLET HS;  FORM STRENGTH: 10/20MG; FORMULATION: CAPLET
     Route: 048

REACTIONS (3)
  - Off label use [Unknown]
  - Cystitis interstitial [Unknown]
  - Renal cyst [Unknown]

NARRATIVE: CASE EVENT DATE: 201801
